FAERS Safety Report 25795974 (Version 1)
Quarter: 2025Q3

REPORT INFORMATION
  Report Type: Spontaneous
  Country: US (occurrence: US)
  Receive Date: 20250912
  Receipt Date: 20250912
  Transmission Date: 20251020
  Serious: No
  Sender: EDENBRIDGE PHARMACEUTICALS
  Company Number: EDEN2400020

PATIENT

DRUGS (1)
  1. TINIDAZOLE [Suspect]
     Active Substance: TINIDAZOLE
     Indication: Product used for unknown indication
     Route: 065

REACTIONS (2)
  - Drug resistance [Unknown]
  - Drug ineffective [Unknown]
